FAERS Safety Report 25526062 (Version 1)
Quarter: 2025Q3

REPORT INFORMATION
  Report Type: Report from Study
  Country: CN (occurrence: CN)
  Receive Date: 20250707
  Receipt Date: 20250707
  Transmission Date: 20251021
  Serious: No
  Sender: JOHNSON AND JOHNSON
  Company Number: CN-JNJFOC-20250706050

PATIENT

DRUGS (2)
  1. STELARA [Suspect]
     Active Substance: USTEKINUMAB
     Indication: Psoriasis
     Route: 058
  2. TREMFYA [Suspect]
     Active Substance: GUSELKUMAB
     Indication: Psoriasis
     Route: 065

REACTIONS (8)
  - Eczema [Unknown]
  - Viral infection [Unknown]
  - Fungal infection [Unknown]
  - Liver function test abnormal [Unknown]
  - Injection site reaction [Unknown]
  - Treatment failure [Unknown]
  - Upper respiratory tract infection [Unknown]
  - Palmoplantar pustulosis [Unknown]
